FAERS Safety Report 9669914 (Version 1)
Quarter: 2013Q4

REPORT INFORMATION
  Report Type: Spontaneous
  Country: PL (occurrence: PL)
  Receive Date: 20131105
  Receipt Date: 20131105
  Transmission Date: 20140711
  Serious: Yes (Other)
  Sender: FDA-Public Use
  Company Number: PL-WATSON-2013-20240

PATIENT
  Age: 72 Year
  Sex: Female
  Weight: 60 kg

DRUGS (1)
  1. CARBOPLATIN (UNKNOWN) [Suspect]
     Indication: OVARIAN CANCER
     Dosage: 436.62 MG, UNKNOWN
     Route: 042
     Dates: start: 20130910, end: 20130910

REACTIONS (5)
  - Retching [Recovered/Resolved]
  - Chest pain [Recovered/Resolved]
  - Chills [Recovered/Resolved]
  - Anxiety [Recovered/Resolved]
  - Asthenia [Recovered/Resolved]
